FAERS Safety Report 25058883 (Version 1)
Quarter: 2025Q1

REPORT INFORMATION
  Report Type: Spontaneous
  Country: US (occurrence: US)
  Receive Date: 20250310
  Receipt Date: 20250310
  Transmission Date: 20250409
  Serious: Yes (Other)
  Sender: MYLAN
  Company Number: US-MYLANLABS-2025M1019118

PATIENT

DRUGS (1)
  1. LEVOTHYROXINE SODIUM [Suspect]
     Active Substance: LEVOTHYROXINE SODIUM
     Indication: Product used for unknown indication

REACTIONS (7)
  - Suicidal ideation [Unknown]
  - Mental impairment [Unknown]
  - Condition aggravated [Unknown]
  - Feeling jittery [Unknown]
  - Disturbance in attention [Unknown]
  - Therapeutic product ineffective [Unknown]
  - Product quality issue [Unknown]
